FAERS Safety Report 7669063-4 (Version None)
Quarter: 2011Q3

REPORT INFORMATION
  Report Type: 
  Country: None (occurrence: None)
  Receive Date: 20110808
  Receipt Date: 20110728
  Transmission Date: 20111222
  Serious: Yes (Hospitalization, Other)
  Sender: FDA-Public Use
  Company Number: US-BAYER-201039240NA

PATIENT
  Age: 18 Year
  Sex: Female
  Weight: 118.37 kg

DRUGS (6)
  1. PHENERGAN HCL [Concomitant]
     Indication: NAUSEA
     Dosage: 0.5 TABLET EVERY 4 HOURS OR AS NEEDED
     Route: 048
  2. LORTAB [Concomitant]
     Indication: PAIN
     Dosage: 1 TO 2 TABLETS EVERY 4 HOURS OR AS NEEDED
     Route: 048
  3. PRENATE ELLITE [Concomitant]
     Dosage: 1 TABLET ONCE DAILY OR AS NEEDED
     Route: 048
  4. YASMIN [Suspect]
     Indication: CONTRACEPTION
     Dosage: UNK
     Route: 048
     Dates: start: 20080601
  5. VICODIN [Concomitant]
  6. YAZ [Suspect]
     Indication: CONTRACEPTION
     Dosage: UNK
     Route: 048
     Dates: start: 20080601

REACTIONS (4)
  - BILE DUCT STONE [None]
  - GALLBLADDER INJURY [None]
  - CHOLECYSTITIS CHRONIC [None]
  - CHOLELITHIASIS [None]
